FAERS Safety Report 6045376-7 (Version None)
Quarter: 2009Q1

REPORT INFORMATION
  Report Type: 
  Country: None (occurrence: None)
  Receive Date: 20090121
  Receipt Date: 20090113
  Transmission Date: 20090719
  Serious: Yes (Other)
  Sender: FDA-Public Use
  Company Number: US-BAYER-200841218NA

PATIENT
  Age: 25 Year
  Sex: Female
  Weight: 60 kg

DRUGS (3)
  1. MIRENA [Suspect]
     Indication: CONTRACEPTION
     Route: 015
     Dates: start: 20080509, end: 20080623
  2. ORTHO TRI-CYCLEN LO [Concomitant]
     Indication: CONTRACEPTION
  3. LABETALOL [Concomitant]
     Indication: BLOOD PRESSURE INCREASED
     Route: 048
     Dates: start: 20080224

REACTIONS (1)
  - UTERINE RUPTURE [None]
